FAERS Safety Report 25004105 (Version 1)
Quarter: 2025Q1

REPORT INFORMATION
  Report Type: Spontaneous
  Country: GB (occurrence: GB)
  Receive Date: 20250224
  Receipt Date: 20250224
  Transmission Date: 20250408
  Serious: Yes (Other)
  Sender: INSUD PHARMA
  Company Number: None

PATIENT
  Age: 29 Year
  Sex: Female
  Weight: 69 kg

DRUGS (3)
  1. SLYND [Suspect]
     Active Substance: DROSPIRENONE
     Indication: Product used for unknown indication
  2. TRIMETHOPRIM [Concomitant]
     Active Substance: TRIMETHOPRIM
     Indication: Prophylaxis
     Dosage: PROPHYLAXIS -  TAKE ONE TABLET AT NIGHT FOLLOWED BY REVIEW WITH YOUR GP
  3. NITROFURANTOIN [Concomitant]
     Active Substance: NITROFURANTOIN
     Dosage: TAKE ONE CAPSULE TWICE DAILY FOR 5 DAYS, TO TRE...
     Dates: start: 20241230, end: 20250102

REACTIONS (1)
  - Urinary tract infection [Not Recovered/Not Resolved]
